FAERS Safety Report 6046004-7 (Version None)
Quarter: 2009Q1

REPORT INFORMATION
  Report Type: 
  Country: None (occurrence: None)
  Receive Date: 20090116
  Receipt Date: 20090113
  Transmission Date: 20090719
  Serious: Yes (Other)
  Sender: FDA-Public Use
  Company Number: S08-USA-01838-01

PATIENT
  Age: 31 Year
  Sex: Female

DRUGS (2)
  1. LEXAPRO [Suspect]
     Indication: ANXIETY
     Dosage: 10 MG (10 MG, 1 IN 1 D) ,ORAL; 20 MG (20 MG, 1 IN 1 D) ,ORAL
     Route: 048
     Dates: start: 20080301, end: 20080101
  2. LEXAPRO [Suspect]
     Indication: ANXIETY
     Dosage: 10 MG (10 MG, 1 IN 1 D) ,ORAL; 20 MG (20 MG, 1 IN 1 D) ,ORAL
     Route: 048
     Dates: start: 20080101, end: 20080501

REACTIONS (7)
  - CONTUSION [None]
  - DIARRHOEA [None]
  - DIZZINESS [None]
  - DRUG EXPOSURE DURING PREGNANCY [None]
  - NAUSEA [None]
  - PREGNANCY [None]
  - VAGINAL HAEMORRHAGE [None]
